FAERS Safety Report 4265026-X (Version None)
Quarter: 2004Q1

REPORT INFORMATION
  Report Type: 
  Country: None (occurrence: None)
  Receive Date: 20040107
  Receipt Date: 19990709
  Transmission Date: 20041129
  Serious: Yes (Hospitalization)
  Sender: FDA-Public Use
  Company Number: 99F--10645

PATIENT
  Sex: Male
  Weight: 48 kg

DRUGS (7)
  1. LIORESAL [Suspect]
     Indication: HICCUPS
     Route: 048
     Dates: start: 19990301, end: 19990301
  2. PIRILENE [Concomitant]
     Indication: PULMONARY TUBERCULOSIS
     Route: 048
     Dates: start: 19990302
  3. RIMIFON [Concomitant]
     Indication: PULMONARY TUBERCULOSIS
     Route: 048
     Dates: start: 19990302
  4. RIFAMPICIN [Concomitant]
     Indication: PULMONARY TUBERCULOSIS
     Route: 048
     Dates: start: 19990302
  5. OMEPRAZOLE [Concomitant]
     Route: 048
  6. FOSINOPRIL SODIUM [Concomitant]
     Route: 048
  7. HEMODIALYSIS [Concomitant]
     Route: 065

REACTIONS (6)
  - AGGRESSION [None]
  - AGITATION [None]
  - CONFUSIONAL STATE [None]
  - ELECTROENCEPHALOGRAM ABNORMAL [None]
  - ENCEPHALOPATHY [None]
  - MUSCLE RIGIDITY [None]
